FAERS Safety Report 4551967-2 (Version None)
Quarter: 2005Q1

REPORT INFORMATION
  Report Type: 
  Country: None (occurrence: None)
  Receive Date: 20050112
  Receipt Date: 20050103
  Transmission Date: 20050727
  Serious: Yes (Death)
  Sender: FDA-Public Use
  Company Number: F04200500004

PATIENT
  Age: 62 Year
  Sex: Male

DRUGS (2)
  1. ELOXATIN [Suspect]
     Indication: RECTAL CANCER
     Dosage: 97.5 MG/M2 OTHER INTRAVENOUS DRIP
     Route: 041
     Dates: start: 20041209, end: 20041209
  2. XELODA [Suspect]
     Indication: RECTAL CANCER
     Dosage: 1000 MG/M2 BID ORAL
     Route: 048
     Dates: start: 20041209, end: 20041223

REACTIONS (3)
  - CARDIAC FAILURE [None]
  - CIRCULATORY COLLAPSE [None]
  - SUDDEN CARDIAC DEATH [None]
